FAERS Safety Report 25727814 (Version 1)
Quarter: 2025Q3

REPORT INFORMATION
  Report Type: Spontaneous
  Country: US (occurrence: None)
  Receive Date: 20250826
  Receipt Date: 20250826
  Transmission Date: 20251021
  Serious: Yes (Hospitalization)
  Sender: FDA-CTU
  Company Number: None

PATIENT
  Sex: Male

DRUGS (1)
  1. ZOSYN [Suspect]
     Active Substance: PIPERACILLIN SODIUM\TAZOBACTAM SODIUM

REACTIONS (5)
  - Erythema [None]
  - Depressed level of consciousness [None]
  - Swollen tongue [None]
  - Dyspnoea [None]
  - Bradycardia [None]

NARRATIVE: CASE EVENT DATE: 20241128
